FAERS Safety Report 11038496 (Version 1)
Quarter: 2015Q2

REPORT INFORMATION
  Report Type: Spontaneous
  Country: BR (occurrence: BR)
  Receive Date: 20150416
  Receipt Date: 20150416
  Transmission Date: 20150821
  Serious: Yes (Life-Threatening)
  Sender: FDA-Public Use
  Company Number: CHPA2015BR004933

PATIENT
  Sex: Male

DRUGS (3)
  1. AAS [Suspect]
     Active Substance: ASPIRIN
     Indication: INFLUENZA
     Route: 065
  2. AAS [Suspect]
     Active Substance: ASPIRIN
     Indication: NASOPHARYNGITIS
  3. BUFFERIN [Suspect]
     Active Substance: ASPIRIN
     Indication: INFLUENZA
     Dosage: UNK
     Route: 065

REACTIONS (2)
  - Asthenia [Unknown]
  - Off label use [Unknown]
